FAERS Safety Report 8734658 (Version 2)
Quarter: 2012Q4

REPORT INFORMATION
  Report Type: 
  Country: US (occurrence: US)
  Receive Date: 20120821
  Receipt Date: 20120926
  Transmission Date: 20130627
  Serious: No
  Sender: FDA-Public Use
  Company Number: US-B.I. PHARMACEUTICALS,INC./RIDGEFIELD-2012-BP-19599BP

PATIENT
  Age: 63 Year
  Sex: Female

DRUGS (23)
  1. SPIRIVA [Suspect]
     Indication: CHRONIC OBSTRUCTIVE PULMONARY DISEASE
     Dosage: 18 mcg
     Route: 055
     Dates: start: 201205
  2. ACYCLOVIR [Concomitant]
     Indication: HERPES VIRUS INFECTION
  3. ADVAIR [Concomitant]
     Indication: CHRONIC OBSTRUCTIVE PULMONARY DISEASE
     Route: 055
  4. ALBUTEROL NEB [Concomitant]
     Indication: CHRONIC OBSTRUCTIVE PULMONARY DISEASE
  5. ALENDRONATE SODIUM [Concomitant]
     Indication: SUPPLEMENTATION THERAPY
  6. ATENOLOL [Concomitant]
     Indication: HYPERTENSION
     Dosage: 50 mg
     Route: 048
  7. CENTRUM SILVER [Concomitant]
     Indication: SUPPLEMENTATION THERAPY
  8. CLONAZEPAM [Concomitant]
     Indication: ANXIETY
  9. CYCLOBENZAPRINE [Concomitant]
     Indication: ARTHRITIS
     Dosage: 30 mg
     Route: 048
  10. DAPSONE [Concomitant]
     Indication: SYSTEMIC LUPUS ERYTHEMATOSUS
     Dosage: 50 mg
     Route: 048
  11. FLUOXETINE [Concomitant]
     Indication: ANXIETY
     Dosage: 60 mg
     Route: 048
  12. HYDROXYCHLOROQUINE [Concomitant]
     Indication: SYSTEMIC LUPUS ERYTHEMATOSUS
     Dosage: 400 mg
     Route: 048
  13. IBUPROFEN [Concomitant]
     Indication: ARTHRITIS
     Route: 048
  14. IPRATROPIUM NEB [Concomitant]
     Indication: CHRONIC OBSTRUCTIVE PULMONARY DISEASE
  15. LANSOPRAZOLE [Concomitant]
     Indication: GASTRIC DISORDER
     Dosage: 30 mg
     Route: 048
  16. LORATADINE [Concomitant]
     Indication: HYPERSENSITIVITY
     Dosage: 10 mg
     Route: 048
  17. PENTOXIFYLLINE [Concomitant]
     Indication: POOR PERIPHERAL CIRCULATION
     Dosage: 1200 mg
     Route: 048
  18. PREDNISONE [Concomitant]
     Indication: SYSTEMIC LUPUS ERYTHEMATOSUS
     Dosage: 5 mg
     Route: 048
  19. TRAMADOL [Concomitant]
     Indication: ARTHRITIS
     Route: 048
  20. VENTOLIN HFA [Concomitant]
     Indication: CHRONIC OBSTRUCTIVE PULMONARY DISEASE
  21. VITAMIN B COMPLEX [Concomitant]
     Indication: SUPPLEMENTATION THERAPY
  22. VITAMIN C [Concomitant]
     Indication: SUPPLEMENTATION THERAPY
  23. VITAMIN E [Concomitant]
     Indication: SUPPLEMENTATION THERAPY

REACTIONS (1)
  - Dyspnoea [Not Recovered/Not Resolved]
